FAERS Safety Report 8165260-2 (Version None)
Quarter: 2012Q1

REPORT INFORMATION
  Report Type: 
  Country: None (occurrence: None)
  Receive Date: 20120222
  Receipt Date: 20120222
  Transmission Date: 20120608
  Serious: Yes (Life-Threatening, Hospitalization, Disabling, Other)
  Sender: FDA-Public Use
  Company Number: None

PATIENT
  Sex: Female
  Weight: 90.7194 kg

DRUGS (2)
  1. STELAZINE [Suspect]
     Indication: SCHIZOPHRENIA
     Dosage: 10 MG EVERYDAY MOUTH
     Route: 048
     Dates: start: 19930101, end: 20110101
  2. HALDOL [Suspect]
     Indication: SCHIZOPHRENIA
     Dosage: 2 MLITERS EVERY 4 WKS NEEDLE
     Dates: start: 20110101, end: 20120101

REACTIONS (1)
  - CEREBROVASCULAR ACCIDENT [None]
